FAERS Safety Report 6029471-4 (Version None)
Quarter: 2009Q1

REPORT INFORMATION
  Report Type: 
  Country: None (occurrence: None)
  Receive Date: 20090105
  Receipt Date: 20090105
  Transmission Date: 20090719
  Serious: Yes (Other)
  Sender: FDA-Public Use
  Company Number: None

PATIENT
  Age: 50 Year
  Sex: Female
  Weight: 74.8435 kg

DRUGS (2)
  1. CYMBALTA [Suspect]
     Indication: COMPLEX REGIONAL PAIN SYNDROME
     Dosage: 60 MG 1 PER DAY BUCCAL
     Route: 002
     Dates: start: 20081208, end: 20081229
  2. CYMBALTA [Suspect]
     Indication: NEURALGIA
     Dosage: 60 MG 1 PER DAY BUCCAL
     Route: 002
     Dates: start: 20081208, end: 20081229

REACTIONS (3)
  - GLOSSODYNIA [None]
  - SWELLING FACE [None]
  - SWOLLEN TONGUE [None]
